FAERS Safety Report 9097916 (Version 1)
Quarter: 2013Q1

REPORT INFORMATION
  Report Type: Other
  Country: GB (occurrence: GB)
  Receive Date: 20130212
  Receipt Date: 20130212
  Transmission Date: 20140127
  Serious: Yes (Other)
  Sender: FDA-Public Use
  Company Number: GB-WATSON-2013-01761

PATIENT
  Age: 57 Year
  Sex: Female
  Weight: 90 kg

DRUGS (4)
  1. CLARITHROMYCIN (UNKNOWN) [Suspect]
     Indication: SINUS DISORDER
     Dosage: 1 DF, DAILY
     Route: 048
     Dates: end: 20121212
  2. CLARITHROMYCIN (UNKNOWN) [Suspect]
     Dosage: 2 DF, BID TO START THE COURSE
     Dates: start: 20121001
  3. AMITRIPTYLINE [Concomitant]
     Indication: SLEEP DISORDER
     Dosage: 3 DF, DAILY
     Route: 065
  4. CIPROFLOXACIN                      /00697203/ [Concomitant]
     Indication: PRODUCT USED FOR UNKNOWN INDICATION
     Route: 065

REACTIONS (1)
  - Arthralgia [Recovered/Resolved]
